FAERS Safety Report 4539224-1 (Version None)
Quarter: 2004Q4

REPORT INFORMATION
  Report Type: 
  Country: None (occurrence: None)
  Receive Date: 20041222
  Receipt Date: 20041208
  Transmission Date: 20050328
  Serious: Yes (Hospitalization)
  Sender: FDA-Public Use
  Company Number: 8008315

PATIENT
  Age: 18 Year
  Sex: Male

DRUGS (7)
  1. KEPPRA [Suspect]
     Indication: EPILEPSY
     Dosage: 250 MG 2/D PO
     Route: 048
     Dates: start: 20041110, end: 20041121
  2. IMOVANE [Suspect]
     Dosage: 7.5 MG 2/D PO
     Route: 048
     Dates: start: 20030901
  3. ZYPREXA [Suspect]
     Indication: PSYCHOTIC DISORDER
     Dosage: 5 MG /D PO
     Route: 048
     Dates: start: 20041101
  4. DEPAKENE [Suspect]
     Dosage: 1000 MG/ D PO
     Route: 048
     Dates: start: 20010501
  5. DEPAKENE [Suspect]
     Dosage: 500 MG 4/D PO
     Route: 048
     Dates: start: 20010515
  6. RIVOTRIL [Suspect]
     Dosage: PO
     Route: 048
     Dates: start: 20040901, end: 20041120
  7. RIVOTRIL [Suspect]
     Dosage: 30 GTT /D PO
     Route: 048
     Dates: start: 20041121

REACTIONS (6)
  - ABNORMAL BEHAVIOUR [None]
  - AGITATION [None]
  - CONVULSION [None]
  - DELIRIUM [None]
  - EXPRESSIVE LANGUAGE DISORDER [None]
  - HALLUCINATION, VISUAL [None]
